FAERS Safety Report 11236462 (Version 1)
Quarter: 2015Q3

REPORT INFORMATION
  Report Type: Spontaneous
  Country: US (occurrence: US)
  Receive Date: 20150702
  Receipt Date: 20150702
  Transmission Date: 20151125
  Serious: Yes (Death, Other)
  Sender: FDA-Public Use
  Company Number: US-BRISTOL-MYERS SQUIBB COMPANY-BMS-2015-042035

PATIENT
  Age: 71 Year
  Sex: Female

DRUGS (3)
  1. YERVOY [Suspect]
     Active Substance: IPILIMUMAB
     Indication: METASTATIC MALIGNANT MELANOMA
     Dosage: 270 MG
     Route: 065
     Dates: start: 20150113
  2. YERVOY [Suspect]
     Active Substance: IPILIMUMAB
     Dosage: 275 MG
     Route: 065
     Dates: start: 20150206
  3. YERVOY [Suspect]
     Active Substance: IPILIMUMAB
     Dosage: 275 MG
     Route: 065
     Dates: start: 20150227

REACTIONS (3)
  - Cardiopulmonary failure [Unknown]
  - Hepatic failure [Unknown]
  - Death [Fatal]
